FAERS Safety Report 21482010 (Version 1)
Quarter: 2022Q4

REPORT INFORMATION
  Report Type: Spontaneous
  Country: ES (occurrence: ES)
  Receive Date: 20221020
  Receipt Date: 20221020
  Transmission Date: 20230112
  Serious: Yes (Life-Threatening, Other)
  Sender: FDA-Public Use
  Company Number: ES-AEMPS-1269627

PATIENT
  Age: 85 Year
  Sex: Female

DRUGS (2)
  1. MORPHINE [Interacting]
     Active Substance: MORPHINE
     Indication: Product used for unknown indication
     Route: 065
     Dates: start: 20220921
  2. FENTANYL TRANSDERMAL SYSTEM [Interacting]
     Active Substance: FENTANYL
     Indication: Product used for unknown indication
     Dosage: TRANSDERMAL FENTANYL PHARMACEUTICAL FORM: PATCHES DOSE: 100MCG
     Route: 065
     Dates: start: 20220921

REACTIONS (2)
  - Depressed level of consciousness [Unknown]
  - Medication error [Unknown]

NARRATIVE: CASE EVENT DATE: 20220921
